FAERS Safety Report 9155437 (Version 2)
Quarter: 2013Q1

REPORT INFORMATION
  Report Type: Spontaneous
  Country: SK (occurrence: SK)
  Receive Date: 20130311
  Receipt Date: 20130312
  Transmission Date: 20140127
  Serious: Yes (Other)
  Sender: FDA-Public Use
  Company Number: SK-ROCHE-1198310

PATIENT
  Sex: Male

DRUGS (11)
  1. RITUXIMAB [Suspect]
     Indication: BURKITT^S LYMPHOMA
     Route: 065
     Dates: start: 20110309
  2. DEXAMETHASONE [Concomitant]
     Route: 065
     Dates: start: 20110309
  3. VINCRISTINE [Concomitant]
     Route: 065
     Dates: start: 20110309
  4. IFOSFAMIDE [Concomitant]
     Route: 065
     Dates: start: 20110309
  5. VEPESID [Concomitant]
  6. ARACYTINE [Concomitant]
     Route: 065
     Dates: start: 20110309
  7. METHOTREXATE [Concomitant]
     Route: 065
     Dates: start: 20110309
  8. PREDNISONE [Concomitant]
     Route: 065
     Dates: start: 20110303
  9. CYCLOPHOSPHAMIDE [Concomitant]
     Route: 065
     Dates: start: 20110303
  10. ACYCLOVIR [Concomitant]
     Route: 065
     Dates: start: 20110303
  11. FLUCONAZOLE [Concomitant]
     Route: 065
     Dates: start: 20110303

REACTIONS (4)
  - Bronchopulmonary aspergillosis [Recovering/Resolving]
  - Pulmonary embolism [Unknown]
  - Jejunal perforation [Recovered/Resolved]
  - Pneumonia bacterial [Recovered/Resolved]
